FAERS Safety Report 25964102 (Version 2)
Quarter: 2025Q4

REPORT INFORMATION
  Report Type: Spontaneous
  Country: CN (occurrence: CN)
  Receive Date: 20251027
  Receipt Date: 20251114
  Transmission Date: 20260118
  Serious: Yes (Life-Threatening, Other)
  Sender: EXELA PHARMA SCIENCES
  Company Number: CN-EXELAPHARMA-2025EXLA00206

PATIENT
  Age: 78 Year
  Sex: Female

DRUGS (6)
  1. BLOXIVERZ [Suspect]
     Active Substance: NEOSTIGMINE METHYLSULFATE
     Indication: Neuromuscular blockade
     Dosage: UNKNOWN
     Route: 042
     Dates: start: 20240412
  2. SUFENTANIL [Concomitant]
     Active Substance: SUFENTANIL
     Indication: General anaesthesia
     Route: 042
     Dates: start: 20240412
  3. MIDAZOLAM [Concomitant]
     Active Substance: MIDAZOLAM
     Indication: General anaesthesia
     Route: 042
     Dates: start: 20240412
  4. PROPOFOL [Concomitant]
     Active Substance: PROPOFOL
     Indication: General anaesthesia
     Dosage: 1.0-1.5 MG/KG
     Route: 042
     Dates: start: 20240412
  5. CISATRACURIUM [Concomitant]
     Active Substance: CISATRACURIUM
     Indication: Neuromuscular blockade
     Dosage: 0.1-0.2 MG/KG
     Route: 042
     Dates: start: 20240412
  6. SUCCINYLCHOLINE [Concomitant]
     Active Substance: SUCCINYLCHOLINE
     Dosage: 0.1-0.2 MG/KG

REACTIONS (7)
  - Cardiac failure [Recovered/Resolved]
  - Blood pressure increased [Recovered/Resolved]
  - Negative pressure pulmonary oedema [Recovered/Resolved]
  - Respiratory failure [Recovered/Resolved]
  - Dyspnoea [Recovered/Resolved]
  - Heart rate increased [Recovered/Resolved]
  - Oxygen saturation decreased [Recovered/Resolved]

NARRATIVE: CASE EVENT DATE: 20240412
